FAERS Safety Report 7633183-0 (Version None)
Quarter: 2011Q3

REPORT INFORMATION
  Report Type: 
  Country: None (occurrence: None)
  Receive Date: 20110725
  Receipt Date: 20110719
  Transmission Date: 20111222
  Serious: Yes (Hospitalization, Other)
  Sender: FDA-Public Use
  Company Number: CZ-PFIZER INC-2011164255

PATIENT
  Age: 7 Month
  Sex: Female
  Weight: 7.5 kg

DRUGS (2)
  1. ZINACEF [Concomitant]
     Indication: OTITIS MEDIA CHRONIC
     Dosage: 150 MG, 3X/DAY
     Route: 040
     Dates: start: 20110701, end: 20110705
  2. CLINDAMYCIN HCL [Suspect]
     Indication: OTITIS MEDIA CHRONIC
     Dosage: 75 MG/8 HOURS
     Route: 041
     Dates: start: 20110704, end: 20110705

REACTIONS (2)
  - CONVULSION [None]
  - LOSS OF CONSCIOUSNESS [None]
